FAERS Safety Report 4643164-7 (Version None)
Quarter: 2005Q2

REPORT INFORMATION
  Report Type: 
  Country: None (occurrence: None)
  Receive Date: 20050422
  Receipt Date: 20041012
  Transmission Date: 20051028
  Serious: Yes (Hospitalization, Disabling)
  Sender: FDA-Public Use
  Company Number: DE-MERCK-0410DEU00394

PATIENT
  Age: 69 Year
  Sex: Male
  Weight: 102 kg

DRUGS (10)
  1. VIOXX [Suspect]
     Indication: MUSCULOSKELETAL PAIN
     Route: 048
     Dates: start: 19990101, end: 20030101
  2. VIOXX [Suspect]
     Indication: OSTEOARTHRITIS
     Route: 048
     Dates: start: 19990101, end: 20030101
  3. ASPIRIN [Concomitant]
     Route: 048
  4. METOPROLOL SUCCINATE [Concomitant]
     Route: 048
  5. AMLODIPINE BESYLATE [Concomitant]
     Route: 048
  6. CANDESARTAN CILEXETIL [Concomitant]
     Route: 048
  7. DOXAZOSIN MESYLATE [Concomitant]
     Route: 048
  8. RANITIDINE HYDROCHLORIDE [Concomitant]
     Route: 048
  9. ATORVASTATIN CALCIUM [Concomitant]
     Route: 048
  10. MAGNESIUM ASPARTATE AND POTASSIUM ASPARTATE [Concomitant]
     Route: 048

REACTIONS (4)
  - ARRHYTHMIA [None]
  - MITRAL VALVE INCOMPETENCE [None]
  - MYOCARDIAL INFARCTION [None]
  - OSTEOARTHRITIS [None]
